FAERS Safety Report 25290974 (Version 2)
Quarter: 2025Q2

REPORT INFORMATION
  Report Type: Spontaneous
  Country: US (occurrence: US)
  Receive Date: 20250510
  Receipt Date: 20250616
  Transmission Date: 20250716
  Serious: No
  Sender: SANOFI AVENTIS
  Company Number: US-SA-2025SA119840

PATIENT
  Age: 85 Year
  Sex: Male

DRUGS (3)
  1. DUPIXENT [Suspect]
     Active Substance: DUPILUMAB
     Indication: Dermatitis atopic
     Route: 065
     Dates: start: 202502, end: 202502
  2. DUPIXENT [Suspect]
     Active Substance: DUPILUMAB
     Dosage: 300 MG, QOW
     Route: 065
     Dates: start: 2025
  3. OZEMPIC [Concomitant]
     Active Substance: SEMAGLUTIDE
     Dates: end: 202504

REACTIONS (3)
  - Pruritus [Unknown]
  - Feeling abnormal [Unknown]
  - Drug ineffective [Unknown]

NARRATIVE: CASE EVENT DATE: 20250101
